FAERS Safety Report 14336682 (Version 2)
Quarter: 2018Q1

REPORT INFORMATION
  Report Type: Report from Study
  Country: CN (occurrence: CN)
  Receive Date: 20171229
  Receipt Date: 20180219
  Transmission Date: 20180509
  Serious: Yes (Other)
  Sender: FDA-Public Use
  Company Number: PHHY2017CN021750

PATIENT
  Age: 55 Year
  Sex: Female

DRUGS (70)
  1. METHYLPREDNISOLONE. [Suspect]
     Active Substance: METHYLPREDNISOLONE
     Dosage: 500 MG, QD
     Route: 065
     Dates: start: 20161020, end: 20161023
  2. GLYCERIN. [Concomitant]
     Active Substance: GLYCERIN
     Indication: CONSTIPATION PROPHYLAXIS
     Dosage: 110 ML, QD
     Route: 054
     Dates: start: 20161019, end: 20161019
  3. CEFOPERAZONE SODIUM AND SULBACTAM SODIUM [Concomitant]
     Active Substance: CEFOPERAZONE SODIUM\SULBACTAM SODIUM
     Dosage: 3 G, Q12H
     Route: 042
     Dates: start: 20161019, end: 20161024
  4. NIFEDIPINE. [Concomitant]
     Active Substance: NIFEDIPINE
     Dosage: 10 MG, QD
     Route: 060
     Dates: start: 20161021, end: 20161024
  5. AMBROXOL HYDROCHLORIDE [Concomitant]
     Active Substance: AMBROXOL HYDROCHLORIDE
     Dosage: 30 MG, Q6H
     Route: 042
     Dates: start: 20161020, end: 20161021
  6. INSULIN [Concomitant]
     Active Substance: INSULIN NOS
     Dosage: 10 IU, QD
     Route: 042
     Dates: start: 20161020, end: 20161020
  7. BASILIXIMAB [Suspect]
     Active Substance: BASILIXIMAB
     Indication: IMMUNOSUPPRESSANT DRUG THERAPY
     Dosage: 20 MG, QD
     Route: 065
     Dates: start: 20161023
  8. AMBROXOL [Concomitant]
     Active Substance: AMBROXOL
     Indication: LUNG DISORDER
     Dosage: 30 ML, QD
     Route: 042
     Dates: start: 20161021, end: 20161101
  9. FLURBIPROFEN AXETIL [Concomitant]
     Active Substance: FLURBIPROFEN AXETIL
     Indication: PRODUCT USED FOR UNKNOWN INDICATION
     Dosage: 100 MG, QD
     Route: 042
     Dates: start: 20161019, end: 20161019
  10. MIDAZOLAM [Concomitant]
     Active Substance: MIDAZOLAM HYDROCHLORIDE
     Indication: SEDATION
     Dosage: 2 MG, QD
     Route: 042
     Dates: start: 20161020, end: 20161020
  11. MICAFUNGIN SODIUM [Concomitant]
     Active Substance: MICAFUNGIN SODIUM
     Dosage: 100 MG, QD
     Route: 042
     Dates: start: 20161020, end: 20161031
  12. NITROGLYCERIN. [Concomitant]
     Active Substance: NITROGLYCERIN
     Indication: BLOOD PRESSURE INCREASED
     Dosage: 10 MG, QD
     Route: 042
     Dates: start: 20161020, end: 20161020
  13. PREDNISONE. [Suspect]
     Active Substance: PREDNISONE
     Indication: IMMUNOSUPPRESSANT DRUG THERAPY
     Dosage: 25 MG, QD
     Route: 065
     Dates: start: 20161023, end: 20161024
  14. BUDESONIDE. [Concomitant]
     Active Substance: BUDESONIDE
     Indication: PRODUCT USED FOR UNKNOWN INDICATION
     Dosage: 2 MG, QD
     Route: 055
     Dates: start: 20161019, end: 20161019
  15. DROPERIDOL. [Concomitant]
     Active Substance: DROPERIDOL
     Dosage: 5 MG, QD
     Route: 030
     Dates: start: 20161021, end: 20161021
  16. MICAFUNGIN SODIUM [Concomitant]
     Active Substance: MICAFUNGIN SODIUM
     Indication: INFECTION PROPHYLAXIS
     Dosage: 100 MG, QD
     Route: 042
     Dates: start: 20161019, end: 20161019
  17. NIFEDIPINE. [Concomitant]
     Active Substance: NIFEDIPINE
     Dosage: 10 MG, QD
     Route: 048
     Dates: start: 20161020, end: 20161021
  18. FELODIPINE. [Concomitant]
     Active Substance: FELODIPINE
     Indication: BLOOD PRESSURE INCREASED
     Dosage: 5 MG, QD
     Route: 048
     Dates: start: 20161021, end: 20161022
  19. HEPARIN SODIUM. [Concomitant]
     Active Substance: HEPARIN SODIUM
     Indication: PRODUCT USED FOR UNKNOWN INDICATION
     Dosage: 250 IU, QD
     Route: 042
     Dates: start: 20161019, end: 20161021
  20. LANSOPRAZOLE. [Concomitant]
     Active Substance: LANSOPRAZOLE
     Indication: STRESS ULCER
     Dosage: 30 MG, Q12H
     Route: 042
     Dates: start: 20161019, end: 20161023
  21. NIFEDIPINE. [Concomitant]
     Active Substance: NIFEDIPINE
     Indication: BLOOD PRESSURE INCREASED
     Dosage: 20 MG, Q12H
     Route: 048
     Dates: start: 20161020, end: 20161021
  22. AMBROXOL HYDROCHLORIDE [Concomitant]
     Active Substance: AMBROXOL HYDROCHLORIDE
     Indication: PRODUCT USED FOR UNKNOWN INDICATION
     Dosage: 30 MG, QD
     Route: 042
     Dates: start: 20161019, end: 20161019
  23. INSULIN [Concomitant]
     Active Substance: INSULIN NOS
     Dosage: 20 IU, QD
     Route: 042
     Dates: start: 20161021, end: 20161021
  24. VALSARTAN. [Concomitant]
     Active Substance: VALSARTAN
     Indication: BLOOD PRESSURE INCREASED
     Dosage: 80 MG, QN
     Route: 048
     Dates: start: 20161024, end: 20161024
  25. BASILIXIMAB [Suspect]
     Active Substance: BASILIXIMAB
     Indication: RENAL TRANSPLANT
     Dosage: 20 MG, QD
     Route: 065
     Dates: start: 20161019, end: 20161019
  26. DROPERIDOL. [Concomitant]
     Active Substance: DROPERIDOL
     Indication: SEDATION
     Dosage: 3 MG, QD
     Route: 042
     Dates: start: 20161020, end: 20161020
  27. POTASSIUM CHLORIDE. [Concomitant]
     Active Substance: POTASSIUM CHLORIDE
     Indication: FLUID REPLACEMENT
     Dosage: 3 G, QD
     Route: 042
     Dates: start: 20161019, end: 20161019
  28. HAEMOCOAGULASE [Concomitant]
     Indication: HAEMOSTASIS
     Dosage: 2 IU, QD
     Route: 042
     Dates: start: 20161019, end: 20161019
  29. ALBUMIN [Concomitant]
     Active Substance: ALBUMIN HUMAN
     Dosage: 10 MG, QD
     Route: 042
     Dates: start: 20161021, end: 20161024
  30. NIFEDIPINE. [Concomitant]
     Active Substance: NIFEDIPINE
     Dosage: 20 MG, QD
     Route: 060
     Dates: start: 20161024, end: 20161024
  31. INSULIN [Concomitant]
     Active Substance: INSULIN NOS
     Indication: FLUID REPLACEMENT
     Dosage: 12 IU, QD
     Route: 042
     Dates: start: 20161019, end: 20161019
  32. INSULIN [Concomitant]
     Active Substance: INSULIN NOS
     Dosage: 16 IU, QD
     Route: 042
     Dates: start: 20161019, end: 20161019
  33. FUROSEMIDE. [Concomitant]
     Active Substance: FUROSEMIDE
     Indication: POLYURIA
     Dosage: 40 MG, QD
     Route: 042
     Dates: start: 20161021, end: 20161021
  34. MYFORTIC [Suspect]
     Active Substance: MYCOPHENOLATE SODIUM
     Dosage: 1080 MG, QD
     Route: 065
     Dates: start: 20161106
  35. ASPIRIN. [Concomitant]
     Active Substance: ASPIRIN
     Indication: BLOOD PRESSURE INCREASED
     Dosage: 100 MG, QD
     Route: 048
     Dates: start: 20161023, end: 20161125
  36. FELODIPINE. [Concomitant]
     Active Substance: FELODIPINE
     Dosage: 10 MG, QD
     Route: 048
     Dates: start: 20161022
  37. HEPARIN SODIUM. [Concomitant]
     Active Substance: HEPARIN SODIUM
     Dosage: 6250 IU, QD
     Route: 042
     Dates: start: 20161019, end: 20161021
  38. RABEPRAZOLE [Concomitant]
     Active Substance: RABEPRAZOLE
     Indication: STRESS ULCER
     Dosage: 10 MG, QD
     Route: 048
     Dates: start: 20161023
  39. POTASSIUM CHLORIDE. [Concomitant]
     Active Substance: POTASSIUM CHLORIDE
     Dosage: 2 G, QD
     Route: 042
     Dates: start: 20161019, end: 20161019
  40. POTASSIUM CHLORIDE. [Concomitant]
     Active Substance: POTASSIUM CHLORIDE
     Dosage: 1 G, QD
     Route: 042
     Dates: start: 20161019, end: 20161020
  41. POTASSIUM CHLORIDE. [Concomitant]
     Active Substance: POTASSIUM CHLORIDE
     Dosage: 2 G, QD
     Route: 042
     Dates: start: 20161021, end: 20161021
  42. ALPROSTADIL. [Concomitant]
     Active Substance: ALPROSTADIL
     Indication: PRODUCT USED FOR UNKNOWN INDICATION
     Dosage: 10 UG, Q12H
     Route: 042
     Dates: start: 20161019, end: 20161020
  43. ALPROSTADIL. [Concomitant]
     Active Substance: ALPROSTADIL
     Dosage: 10 UG, Q12H
     Route: 042
     Dates: start: 20161020, end: 20161021
  44. ALBUMIN [Concomitant]
     Active Substance: ALBUMIN HUMAN
     Indication: SUPPLEMENTATION THERAPY
     Dosage: 10 MG, Q8H
     Route: 042
     Dates: start: 20161020, end: 20161024
  45. SODIUM BICARBONATE. [Concomitant]
     Active Substance: SODIUM BICARBONATE
     Indication: FLUID REPLACEMENT
     Dosage: 100 ML, QD
     Route: 042
     Dates: start: 20161020, end: 20161020
  46. NIFEDIPINE. [Concomitant]
     Active Substance: NIFEDIPINE
     Dosage: 60 MG, QD
     Route: 048
     Dates: start: 20170407
  47. AMBROXOL HYDROCHLORIDE [Concomitant]
     Active Substance: AMBROXOL HYDROCHLORIDE
     Dosage: 30 MG, Q6H
     Route: 042
     Dates: start: 20161019, end: 20161020
  48. METOCLOPRAMIDE HYDROCHLORIDE. [Concomitant]
     Active Substance: METOCLOPRAMIDE HYDROCHLORIDE
     Indication: GASTRIC DISORDER
     Dosage: 10 MG, QD
     Route: 042
     Dates: start: 20161020, end: 20161020
  49. RECOMBINANT HUMAN ERYTHROPOIETIN [Concomitant]
     Active Substance: ERYTHROPOIETIN
     Indication: ANAEMIA
     Dosage: 10 KIU, UNK
     Route: 042
     Dates: start: 20161026, end: 20161028
  50. VALSARTAN. [Concomitant]
     Active Substance: VALSARTAN
     Dosage: 80 MG, BID
     Route: 048
     Dates: start: 20170407
  51. TACROLIMUS. [Suspect]
     Active Substance: TACROLIMUS
     Indication: IMMUNOSUPPRESSANT DRUG THERAPY
     Dosage: 4 MG, QD
     Route: 065
     Dates: start: 20161021, end: 20161024
  52. TACROLIMUS. [Suspect]
     Active Substance: TACROLIMUS
     Dosage: 6 MG, QD
     Route: 065
     Dates: start: 20161024
  53. CALCITRIOL. [Concomitant]
     Active Substance: CALCITRIOL
     Indication: MINERAL SUPPLEMENTATION
     Dosage: 0.25 UG, QD
     Route: 048
     Dates: start: 20161209
  54. ALPROSTADIL. [Concomitant]
     Active Substance: ALPROSTADIL
     Dosage: 10 UG, QD
     Route: 042
     Dates: start: 20161021, end: 20161101
  55. LACTULOSE. [Concomitant]
     Active Substance: LACTULOSE
     Indication: CONSTIPATION PROPHYLAXIS
     Dosage: 10 ML, TID
     Route: 048
     Dates: start: 20161021, end: 20161125
  56. HUMAN-INSULIN ^NORDISK^ [Concomitant]
     Indication: FLUID REPLACEMENT
     Dosage: 12 IU, QD
     Route: 042
     Dates: start: 20161020, end: 20161020
  57. CEFOPERAZONE SODIUM AND SULBACTAM SODIUM [Concomitant]
     Active Substance: CEFOPERAZONE SODIUM\SULBACTAM SODIUM
     Indication: INFLAMMATION
     Dosage: 3 G, QD
     Route: 042
     Dates: start: 20161019, end: 20161019
  58. MYFORTIC [Suspect]
     Active Substance: MYCOPHENOLATE SODIUM
     Indication: RENAL TRANSPLANT
     Dosage: 1440 MG, QD
     Route: 065
     Dates: start: 20161020, end: 20161105
  59. MYFORTIC [Suspect]
     Active Substance: MYCOPHENOLATE SODIUM
     Dosage: 720 MG, UNK
     Route: 065
     Dates: start: 20161202
  60. METHYLPREDNISOLONE. [Suspect]
     Active Substance: METHYLPREDNISOLONE
     Indication: IMMUNOSUPPRESSANT DRUG THERAPY
     Dosage: 1000 MG, QD
     Route: 065
     Dates: start: 20161019, end: 20161019
  61. ESOMEPRAZOLE MAGNESIUM. [Concomitant]
     Active Substance: ESOMEPRAZOLE MAGNESIUM
     Indication: STRESS ULCER
     Dosage: 40 MG, QD
     Route: 042
     Dates: start: 20161020, end: 20161021
  62. PROPOFOL. [Concomitant]
     Active Substance: PROPOFOL
     Indication: SEDATION
     Dosage: 1 G, QD
     Route: 042
     Dates: start: 20161019, end: 20161020
  63. SACCHAROMYCES BOULARDII [Concomitant]
     Active Substance: SACCHAROMYCES CEREVISIAE
     Indication: DIARRHOEA
     Dosage: 0.5 G, BID
     Route: 048
     Dates: start: 20161219, end: 20161225
  64. FELODIPINE. [Concomitant]
     Active Substance: FELODIPINE
     Dosage: 5 MG, QD
     Route: 048
     Dates: start: 20161230
  65. MOXIFLOXACIN HYDROCHLORIDE. [Concomitant]
     Active Substance: MOXIFLOXACIN HYDROCHLORIDE
     Indication: INFLAMMATION
     Dosage: 400 MG, QD
     Route: 042
     Dates: start: 20161102, end: 20161107
  66. ALBUMIN [Concomitant]
     Active Substance: ALBUMIN HUMAN
     Dosage: 10 MG, QD
     Route: 042
     Dates: start: 20161021, end: 20161021
  67. URAPIDIL HYDROCHLORIDE [Concomitant]
     Active Substance: URAPIDIL HYDROCHLORIDE
     Indication: BLOOD PRESSURE INCREASED
     Dosage: 250 MG, BID
     Route: 042
     Dates: start: 20161020, end: 20161020
  68. NIFEDIPINE. [Concomitant]
     Active Substance: NIFEDIPINE
     Dosage: 30 MG, QD
     Route: 060
     Dates: start: 20161024
  69. FUROSEMIDE. [Concomitant]
     Active Substance: FUROSEMIDE
     Dosage: 20 MG, QD
     Route: 042
     Dates: start: 20161021, end: 20161023
  70. TETRANDRINE. [Concomitant]
     Active Substance: TETRANDRINE
     Indication: ANALGESIC THERAPY
     Dosage: 20 MG, TID
     Route: 048
     Dates: start: 20170412, end: 20170414

REACTIONS (9)
  - Blood albumin decreased [Unknown]
  - Protein urine present [Unknown]
  - Granulocytopenia [Recovering/Resolving]
  - Diarrhoea [Recovering/Resolving]
  - Red blood cells urine [Unknown]
  - Lymphocyte count decreased [Unknown]
  - Blood urea increased [Unknown]
  - Haemoglobin decreased [Unknown]
  - Chest pain [Recovered/Resolved]

NARRATIVE: CASE EVENT DATE: 20161022
